FAERS Safety Report 4673324-0 (Version None)
Quarter: 2005Q2

REPORT INFORMATION
  Report Type: 
  Country: None (occurrence: None)
  Receive Date: 20050524
  Receipt Date: 20050524
  Transmission Date: 20051028
  Serious: Yes (Life-Threatening, Hospitalization)
  Sender: FDA-Public Use
  Company Number: None

PATIENT
  Age: 75 Year
  Sex: Male
  Weight: 131.5431 kg

DRUGS (21)
  1. PACLITAXEL [Suspect]
     Indication: OESOPHAGEAL CARCINOMA
     Dosage: 378MG/500ML NS
     Dates: start: 20041203
  2. GLIPIZIDE [Concomitant]
  3. DEXAMETHASONE [Concomitant]
  4. FUROSEMIDE [Concomitant]
  5. FOLIC ACID [Concomitant]
  6. DOCUSATE SODIUM [Concomitant]
  7. ACETAMINOPHEN [Concomitant]
  8. ALBUTEROL [Concomitant]
  9. HYDROCODONE BITARTRATE + ACETAMINOPHEN [Concomitant]
  10. LORAZEPAM [Concomitant]
  11. METOPROLOL [Concomitant]
  12. MULTIVITAMINS/MINERAL [Concomitant]
  13. OMEPRAZOLE [Concomitant]
  14. ONDANSETRON [Concomitant]
  15. PROMETHAZINE [Concomitant]
  16. TEMAZEPAM [Concomitant]
  17. THIAMINE [Concomitant]
  18. SODIUM CHLORIDE [Concomitant]
  19. MAGNESIUM [Concomitant]
  20. POTASSIUM CL [Concomitant]
  21. DIPHENHYDRAMINE HCL [Concomitant]

REACTIONS (7)
  - ASTHENIA [None]
  - CHEST PAIN [None]
  - DYSPNOEA [None]
  - ERYTHEMA [None]
  - HYPOTENSION [None]
  - INFUSION RELATED REACTION [None]
  - MUSCLE SPASMS [None]
